FAERS Safety Report 7248416-2 (Version None)
Quarter: 2011Q1

REPORT INFORMATION
  Report Type: 
  Country: None (occurrence: None)
  Receive Date: 20110127
  Receipt Date: 20110125
  Transmission Date: 20110831
  Serious: Yes (Life-Threatening)
  Sender: FDA-Public Use
  Company Number: GB-ASTRAZENECA-2011SE03348

PATIENT
  Age: 25479 Day
  Sex: Male
  Weight: 120 kg

DRUGS (6)
  1. SEROQUEL [Suspect]
     Indication: AGITATION
     Route: 048
     Dates: start: 20101215, end: 20110112
  2. IBUPROFEN [Concomitant]
     Indication: OSTEOARTHRITIS
     Route: 048
     Dates: start: 19950101, end: 20110101
  3. SEROQUEL [Suspect]
     Indication: ABNORMAL BEHAVIOUR
     Route: 048
     Dates: start: 20101215, end: 20110112
  4. SEROQUEL [Suspect]
     Indication: CONFUSIONAL STATE
     Route: 048
     Dates: start: 20101215, end: 20110112
  5. SEROQUEL [Suspect]
     Indication: DEMENTIA
     Route: 048
     Dates: start: 20101215, end: 20110112
  6. SEROQUEL [Suspect]
     Indication: AGGRESSION
     Route: 048
     Dates: start: 20101215, end: 20110112

REACTIONS (2)
  - DUODENAL ULCER PERFORATION [None]
  - GASTRODUODENAL ULCER [None]
